FAERS Safety Report 5723893-4 (Version None)
Quarter: 2008Q2

REPORT INFORMATION
  Report Type: 
  Country: None (occurrence: None)
  Receive Date: 20080430
  Receipt Date: 20080416
  Transmission Date: 20081010
  Serious: Yes (Hospitalization, Other)
  Sender: FDA-Public Use
  Company Number: IT-GILEAD-2008-0016118

PATIENT
  Sex: Male

DRUGS (3)
  1. VIREAD [Suspect]
     Indication: HIV INFECTION
     Route: 048
     Dates: start: 20050420, end: 20080326
  2. REYATAZ [Concomitant]
  3. VIDEX [Concomitant]

REACTIONS (3)
  - INAPPROPRIATE SCHEDULE OF DRUG ADMINISTRATION [None]
  - RENAL FAILURE [None]
  - VOMITING [None]
